FAERS Safety Report 9381798 (Version 1)
Quarter: 2013Q3

REPORT INFORMATION
  Report Type: Spontaneous
  Country: BR (occurrence: BR)
  Receive Date: 20130703
  Receipt Date: 20130703
  Transmission Date: 20140515
  Serious: Yes (Other)
  Sender: FDA-Public Use
  Company Number: PHHY2013BR068763

PATIENT
  Age: 61 Year
  Sex: Female

DRUGS (10)
  1. APRESOLIN [Suspect]
     Indication: HYPERTENSION
     Dosage: 4 DF (50MG), DAILY
     Route: 048
     Dates: start: 20130516, end: 20130523
  2. SELOZOK [Suspect]
     Indication: HYPERTENSION
     Dosage: 2 DF (50MG), DAILY
     Route: 048
     Dates: start: 20130516
  3. AAS [Concomitant]
     Dosage: 100 MG, QD (1 TABLET AFTER LUNCH)
     Route: 048
  4. SIMVASTATIN [Concomitant]
     Indication: BLOOD CHOLESTEROL ABNORMAL
     Dosage: 20MG,  1 TABLET DAILY
     Route: 048
  5. FLUOXETINE [Concomitant]
     Dosage: 20MG,  1 TABLET DAILY
     Route: 048
  6. FUROSEMIDE [Concomitant]
     Indication: FLUID RETENTION
     Dosage: 40 MG, 1 TABLET DAILY
     Route: 048
  7. AMLODIPINE [Concomitant]
     Dosage: 2 DF (5MG), DAILY
     Route: 048
  8. INSULIN NPH//INSULIN ISOPHANE BOVINE [Concomitant]
     Indication: DIABETES MELLITUS
     Dosage: UNK UKN, TID
     Route: 058
  9. CLONAZEPAM [Concomitant]
     Indication: SLEEP DISORDER
     Dosage: 2 MG (1 TABLET BEFORE PATIENT SLEEP)
     Route: 048
  10. AMITRIPTYLINE [Concomitant]
     Indication: DEPRESSION
     Dosage: 1 DF, DAILY
     Route: 048

REACTIONS (2)
  - Angina unstable [Unknown]
  - Blood pressure abnormal [Not Recovered/Not Resolved]
